FAERS Safety Report 10261207 (Version 1)
Quarter: 2014Q2

REPORT INFORMATION
  Report Type: Spontaneous
  Country: US (occurrence: US)
  Receive Date: 20140626
  Receipt Date: 20140626
  Transmission Date: 20141212
  Serious: No
  Sender: FDA-Public Use
  Company Number: US-AMGEN-USASP2014046943

PATIENT
  Age: 58 Year
  Sex: Female

DRUGS (2)
  1. ENBREL [Suspect]
     Indication: PSORIATIC ARTHROPATHY
     Dosage: 50 MG, QWK
     Route: 065
     Dates: start: 20140605
  2. METHOTREXATE [Concomitant]
     Dosage: UNK

REACTIONS (3)
  - Pruritus [Recovered/Resolved]
  - Scratch [Recovered/Resolved]
  - Injection site pain [Recovered/Resolved]
